FAERS Safety Report 8511938-8 (Version None)
Quarter: 2012Q3

REPORT INFORMATION
  Report Type: 
  Country: None (occurrence: None)
  Receive Date: 20120716
  Receipt Date: 20120706
  Transmission Date: 20120928
  Serious: Yes (Other)
  Sender: FDA-Public Use
  Company Number: US-ASTRAZENECA-2012SE46578

PATIENT
  Age: 61 Year
  Sex: Female
  Weight: 66.2 kg

DRUGS (6)
  1. CALCIUM [Concomitant]
  2. FOLBIC ACID [Concomitant]
  3. BABY ASPRIRIN [Concomitant]
  4. FISH OIL [Concomitant]
  5. PROTONIX [Concomitant]
  6. CRESTOR [Suspect]
     Indication: BLOOD TRIGLYCERIDES INCREASED
     Route: 048

REACTIONS (7)
  - ARTERIOSCLEROSIS [None]
  - THYROID DISORDER [None]
  - WEIGHT INCREASED [None]
  - CARDIOLIPIN ANTIBODY [None]
  - DYSPHONIA [None]
  - WEIGHT DECREASED [None]
  - HYPERHOMOCYSTEINAEMIA [None]
